FAERS Safety Report 5921655-6 (Version None)
Quarter: 2008Q3

REPORT INFORMATION
  Report Type: 
  Country: None (occurrence: None)
  Receive Date: 20080909
  Receipt Date: 20070806
  Transmission Date: 20090109
  Serious: Yes (Hospitalization)
  Sender: FDA-Public Use
  Company Number: 163-20785-06121210

PATIENT
  Age: 52 Year
  Sex: Male

DRUGS (22)
  1. THALOMID [Suspect]
     Indication: MULTIPLE MYELOMA
     Dosage: 200 MG, DAYS 1-4, ORAL
     Route: 048
     Dates: start: 20061202, end: 20061205
  2. DEXAMETHASONE TAB [Suspect]
     Indication: MULTIPLE MYELOMA
     Dosage: 40 MG, DAYS 1-4, ORAL
     Route: 048
     Dates: start: 20061202, end: 20061205
  3. BORTEZOMIB (BORTEZOMIB) [Suspect]
     Indication: MULTIPLE MYELOMA
     Dosage: 1 MG, DAYS 1, 4, 8, 11 EVERY 28 DAYS, INTRAVENOUS
     Route: 042
     Dates: start: 20061202, end: 20061205
  4. CISPLATIN [Suspect]
     Indication: MULTIPLE MYELOMA
     Dosage: 12 MG, DAYS 1-4, INTRAVENOUS
     Route: 042
     Dates: start: 20061202, end: 20061205
  5. ADRIAMYCIN PFS [Suspect]
     Indication: MULTIPLE MYELOMA
     Dosage: 12 MG, DAYS 1-4, INTRAVENOUS
     Route: 042
     Dates: start: 20061202, end: 20061205
  6. CYCLOPHOSPHAMIDE [Suspect]
     Indication: MULTIPLE MYELOMA
     Dosage: 500 MG, DAYS 1-4, INTRAVENOUS
     Route: 042
     Dates: start: 20061202, end: 20061205
  7. ETOPOSIDE [Suspect]
     Indication: MULTIPLE MYELOMA
     Dosage: 50 MG, DAYS 1-4, INTRAVENOUS
     Route: 042
     Dates: start: 20061202, end: 20061205
  8. IV HYDRATION (PARENTERAL) [Concomitant]
  9. FLORINEF [Concomitant]
  10. ACYCLOVIR (ACICLOVIR) (TABLETS) [Concomitant]
  11. VITAMIN B12 [Concomitant]
  12. MULTIVITAMINS (MULTIVITAMINS) (TABLETS) [Concomitant]
  13. DOCUSATE SODIUM (DOCUSATE SODIUM) (CAPSULES) [Concomitant]
  14. LORAZEPAM (LORAZEPAM) (TABLETS) [Concomitant]
  15. PROCTOFOAM (PRAMOCAINE HYDROCHLORIDE) (CREAM) [Concomitant]
  16. FOLIC ACID (FOLIC ACID) (TABLETS) [Concomitant]
  17. RANITIDINE HCL (RANITIDINE HYDROCHLORIDE) (TABLETS) [Concomitant]
  18. ARANESP [Concomitant]
  19. BACLOFEN [Concomitant]
  20. LEVAQUIN [Concomitant]
  21. VFEND (VORICONAZOLE) (TABLETS) [Concomitant]
  22. SENNA (SENNA) (TABLETS) [Concomitant]

REACTIONS (6)
  - ASTHENIA [None]
  - CONSTIPATION [None]
  - DIZZINESS [None]
  - HYPOTENSION [None]
  - NAUSEA [None]
  - VOMITING [None]
